FAERS Safety Report 4335141-0 (Version None)
Quarter: 2004Q2

REPORT INFORMATION
  Report Type: 
  Country: None (occurrence: None)
  Receive Date: 20040402
  Receipt Date: 20040211
  Transmission Date: 20050107
  Serious: No
  Sender: FDA-Public Use
  Company Number: 234444

PATIENT
  Age: 51 Year
  Sex: Female
  Weight: 81.6 kg

DRUGS (5)
  1. NOVOLOG [Suspect]
     Indication: DIABETES MELLITUS INSULIN-DEPENDENT
     Dosage: 15 IU, QD; SUBCUTANEOUS
     Route: 058
     Dates: start: 20030801
  2. PROZAC [Concomitant]
  3. TOPROL-XL [Concomitant]
  4. HUMATROPE [Concomitant]
  5. MINIMED 508 INSULIN PUMP [Concomitant]

REACTIONS (1)
  - BLOOD GLUCOSE DECREASED [None]
